FAERS Safety Report 8966788 (Version 2)
Quarter: 2013Q1

REPORT INFORMATION
  Report Type: Report from Study
  Country: DE (occurrence: DE)
  Receive Date: 20121214
  Receipt Date: 20130121
  Transmission Date: 20140127
  Serious: Yes (Hospitalization)
  Sender: FDA-Public Use
  Company Number: DE-GILEAD-2012-0066206

PATIENT
  Age: 68 Year
  Sex: Female

DRUGS (11)
  1. AMBRISENTAN [Suspect]
     Indication: PULMONARY ARTERIAL HYPERTENSION
     Dosage: 10 MG, QD
     Route: 048
     Dates: start: 20120725
  2. PLACEBO [Suspect]
     Indication: PULMONARY ARTERIAL HYPERTENSION
     Dosage: 1 DF, QD
     Route: 048
     Dates: start: 20120725
  3. MARCUMAR [Concomitant]
     Indication: PULMONARY ARTERIAL HYPERTENSION
     Dosage: 1 DF, QD
     Route: 048
     Dates: start: 20120718
  4. OMEPRAZOL                          /00661201/ [Concomitant]
     Indication: PULMONARY ARTERIAL HYPERTENSION
     Dosage: 40MG TWICE PER DAY
     Route: 048
     Dates: start: 20120718
  5. TORASEMID [Concomitant]
     Indication: PULMONARY ARTERIAL HYPERTENSION
     Dosage: 10MG THREE TIMES PER DAY
     Route: 048
     Dates: start: 20121004
  6. SPIRONOLACTON [Concomitant]
     Indication: PULMONARY ARTERIAL HYPERTENSION
     Dosage: 25MG PER DAY
     Route: 048
     Dates: start: 20121017
  7. SALBUHEXAL                         /00139502/ [Concomitant]
     Indication: CHRONIC OBSTRUCTIVE PULMONARY DISEASE
     Dosage: 1 DF, PRN
     Route: 055
     Dates: start: 201109
  8. PRESOMEN [Concomitant]
     Dosage: .6U UNKNOWN
     Route: 048
  9. PRESOMEN [Concomitant]
     Dosage: .6U UNKNOWN
     Route: 048
  10. VIANI [Concomitant]
     Indication: CHRONIC OBSTRUCTIVE PULMONARY DISEASE
     Route: 055
     Dates: start: 20120504
  11. SPIRIVA [Concomitant]
     Indication: CHRONIC OBSTRUCTIVE PULMONARY DISEASE
     Dosage: 18MCG PER DAY
     Route: 055
     Dates: start: 20120504

REACTIONS (1)
  - Pulmonary hypertension [Recovered/Resolved]
